FAERS Safety Report 8945958 (Version 2)
Quarter: 2013Q1

REPORT INFORMATION
  Report Type: Spontaneous
  Country: US (occurrence: US)
  Receive Date: 20121205
  Receipt Date: 20130228
  Transmission Date: 20140127
  Serious: Yes (Life-Threatening, Hospitalization)
  Sender: FDA-Public Use
  Company Number: US-JNJFOC-20121200239

PATIENT
  Age: 64 Year
  Sex: Female
  Weight: 61.1 kg

DRUGS (25)
  1. DOXORUBICIN [Suspect]
     Indication: DIFFUSE LARGE B-CELL LYMPHOMA
     Dosage: ON DAY 3, TOTAL DOSE OF 83 MG
     Route: 042
     Dates: start: 20121107, end: 20121107
  2. DOXORUBICIN [Suspect]
     Indication: DIFFUSE LARGE B-CELL LYMPHOMA
     Dosage: ONCE, ON DAY 3
     Route: 042
     Dates: start: 20130130, end: 20130130
  3. DOXORUBICIN [Suspect]
     Indication: DIFFUSE LARGE B-CELL LYMPHOMA
     Dosage: ON DAY 3
     Route: 042
     Dates: start: 20120921, end: 20120921
  4. DOXORUBICIN [Suspect]
     Indication: DIFFUSE LARGE B-CELL LYMPHOMA
     Dosage: ON DAY 3
     Route: 042
     Dates: start: 20120831, end: 20120831
  5. VORINOSTAT [Suspect]
     Indication: DIFFUSE LARGE B-CELL LYMPHOMA
     Dosage: DAY 1 TO 5
     Route: 048
     Dates: start: 20120919, end: 20120923
  6. VORINOSTAT [Suspect]
     Indication: DIFFUSE LARGE B-CELL LYMPHOMA
     Dosage: DAY 1 TO 5
     Route: 048
     Dates: start: 20120829, end: 20120902
  7. VORINOSTAT [Suspect]
     Indication: DIFFUSE LARGE B-CELL LYMPHOMA
     Route: 048
     Dates: start: 20130128, end: 20130130
  8. VORINOSTAT [Suspect]
     Indication: DIFFUSE LARGE B-CELL LYMPHOMA
     Dosage: DAY 1 TO 5, TOTAL DOSE: 1500 MG
     Route: 048
     Dates: start: 20121105, end: 20121109
  9. RITUXIMAB [Suspect]
     Indication: DIFFUSE LARGE B-CELL LYMPHOMA
     Dosage: ONCE ON DAY 3, TOTAL DOSE: 626 MG
     Route: 042
     Dates: start: 20121107, end: 20121107
  10. RITUXIMAB [Suspect]
     Indication: DIFFUSE LARGE B-CELL LYMPHOMA
     Dosage: ONCE ON DAY 3
     Route: 042
     Dates: start: 20120831, end: 20120831
  11. RITUXIMAB [Suspect]
     Indication: DIFFUSE LARGE B-CELL LYMPHOMA
     Route: 042
     Dates: start: 20130130, end: 20130130
  12. RITUXIMAB [Suspect]
     Indication: DIFFUSE LARGE B-CELL LYMPHOMA
     Dosage: ONCE ON DAY 3
     Route: 042
     Dates: start: 20120921, end: 20120921
  13. CYCLOPHOSPHAMIDE [Suspect]
     Indication: DIFFUSE LARGE B-CELL LYMPHOMA
     Dosage: OVER 30-60 MINUTES ON DAY 3; INTRAVENOUS
     Route: 042
     Dates: start: 20130130, end: 20130130
  14. CYCLOPHOSPHAMIDE [Suspect]
     Indication: DIFFUSE LARGE B-CELL LYMPHOMA
     Dosage: OVER 30-60 MINUTES ON DAY 3
     Route: 042
     Dates: start: 20120831, end: 20120831
  15. CYCLOPHOSPHAMIDE [Suspect]
     Indication: DIFFUSE LARGE B-CELL LYMPHOMA
     Dosage: OVER 30-60 MINUTES ON DAY 3
     Route: 042
     Dates: start: 20120921, end: 20120921
  16. CYCLOPHOSPHAMIDE [Suspect]
     Indication: DIFFUSE LARGE B-CELL LYMPHOMA
     Dosage: OVER 30-60 MINUTES ON DAY 3, TOTAL DOSE: 1252 MG
     Route: 042
     Dates: start: 20121107, end: 20121107
  17. VINCRISTINE SULFATE [Suspect]
     Indication: DIFFUSE LARGE B-CELL LYMPHOMA
     Dosage: ON DAY 3
     Route: 042
     Dates: start: 20120831, end: 20120831
  18. VINCRISTINE SULFATE [Suspect]
     Indication: DIFFUSE LARGE B-CELL LYMPHOMA
     Dosage: ON DAY 3
     Route: 042
     Dates: start: 20120921, end: 20120921
  19. VINCRISTINE SULFATE [Suspect]
     Indication: DIFFUSE LARGE B-CELL LYMPHOMA
     Dosage: ON DAY 3, TOTAL DOSE: 2 MG
     Route: 042
     Dates: start: 20121107, end: 20121107
  20. VINCRISTINE SULFATE [Suspect]
     Indication: DIFFUSE LARGE B-CELL LYMPHOMA
     Dosage: ONCE-ON DAY 3
     Route: 042
     Dates: start: 20130130, end: 20130130
  21. PREDNISONE [Suspect]
     Indication: DIFFUSE LARGE B-CELL LYMPHOMA
     Dosage: ONCE A DAY FROM DAY 3 TO DAY 7, TOTAL DOSE: 400 MG
     Route: 048
     Dates: start: 20121107, end: 20121111
  22. PREDNISONE [Suspect]
     Indication: DIFFUSE LARGE B-CELL LYMPHOMA
     Dosage: ONCE A DAY FROM DAY 3 TO DAY 7
     Route: 048
     Dates: start: 20120921, end: 20120925
  23. PREDNISONE [Suspect]
     Indication: DIFFUSE LARGE B-CELL LYMPHOMA
     Dosage: ONCE A DAY FROM DAY 3 TO DAY 7
     Route: 048
     Dates: start: 20120831, end: 20120904
  24. PREDNISONE [Suspect]
     Indication: DIFFUSE LARGE B-CELL LYMPHOMA
     Route: 048
     Dates: start: 20130130, end: 20130203
  25. INFLUENZA VACCINE [Suspect]
     Indication: IMMUNISATION
     Route: 065
     Dates: start: 20121010, end: 20121010

REACTIONS (15)
  - Pain [Unknown]
  - Lymphocyte count decreased [Recovered/Resolved]
  - Febrile neutropenia [Recovering/Resolving]
  - Pyrexia [Recovered/Resolved]
  - Staphylococcal infection [Recovered/Resolved]
  - Neutrophil count decreased [Not Recovered/Not Resolved]
  - Platelet count decreased [Unknown]
  - White blood cell count decreased [Not Recovered/Not Resolved]
  - Urinary tract infection [Unknown]
  - Cystitis noninfective [Not Recovered/Not Resolved]
  - BK virus infection [Unknown]
  - Nausea [Recovered/Resolved]
  - Aspartate aminotransferase increased [Recovered/Resolved]
  - Anaemia [Recovered/Resolved]
  - Vomiting [Recovered/Resolved]
